FAERS Safety Report 5228860-5 (Version None)
Quarter: 2007Q1

REPORT INFORMATION
  Report Type: 
  Country: None (occurrence: None)
  Receive Date: 20070205
  Receipt Date: 20070124
  Transmission Date: 20070707
  Serious: Yes (Death)
  Sender: FDA-Public Use
  Company Number: DK-ROCHE-475712

PATIENT
  Age: 30 Year
  Sex: Male

DRUGS (2)
  1. RIVOTRIL [Suspect]
     Indication: ANXIETY
     Route: 065
     Dates: start: 20050317
  2. RIVOTRIL [Suspect]
     Route: 065

REACTIONS (2)
  - ANTICONVULSANT DRUG LEVEL INCREASED [None]
  - COMPLETED SUICIDE [None]
